FAERS Safety Report 17185205 (Version 1)
Quarter: 2019Q4

REPORT INFORMATION
  Report Type: Spontaneous
  Country: US (occurrence: US)
  Receive Date: 20191220
  Receipt Date: 20191220
  Transmission Date: 20200122
  Serious: No
  Sender: FDA-Public Use
  Company Number: US-KALA PHARAMACEUTICALS-2019KLA00046

PATIENT
  Age: 63 Year
  Sex: Female
  Weight: 103.4 kg

DRUGS (2)
  1. INVELTYS [Suspect]
     Active Substance: LOTEPREDNOL ETABONATE
     Indication: EYE PAIN
     Dosage: UNK, 2X/DAY
     Route: 047
     Dates: start: 20190815, end: 20190904
  2. INVELTYS [Suspect]
     Active Substance: LOTEPREDNOL ETABONATE
     Indication: EYE INFLAMMATION

REACTIONS (2)
  - Incorrect product administration duration [Recovered/Resolved]
  - Foreign body in eye [Unknown]

NARRATIVE: CASE EVENT DATE: 201908
